FAERS Safety Report 8218003-8 (Version None)
Quarter: 2012Q1

REPORT INFORMATION
  Report Type: 
  Country: None (occurrence: None)
  Receive Date: 20120319
  Receipt Date: 20120313
  Transmission Date: 20120608
  Serious: Yes (Other)
  Sender: FDA-Public Use
  Company Number: FR-PFIZER INC-2012065469

PATIENT
  Age: 65 Year
  Sex: Male

DRUGS (10)
  1. AVANDAMET [Suspect]
     Indication: TYPE 2 DIABETES MELLITUS
     Dosage: 1 DF, 1X/DAY
     Route: 048
     Dates: end: 20071001
  2. ATORVASTATIN [Suspect]
     Dosage: 10 MG, 1X/DAY
     Route: 048
     Dates: start: 20090101
  3. DIAMICRON [Suspect]
     Dosage: UNK
     Route: 048
     Dates: start: 20080501, end: 20090501
  4. ACTOS [Concomitant]
     Dosage: 30 MG, 1X/DAY
     Route: 048
     Dates: start: 20101201, end: 20110701
  5. CLONAZEPAM [Suspect]
     Dosage: 8 DF, 1X/DAY
     Dates: start: 20090101
  6. JANUVIA [Suspect]
     Dosage: 100 MG, 1X/DAY
     Route: 048
     Dates: start: 20090501
  7. RABEPRAZOLE SODIUM [Suspect]
     Dosage: 20 MG, 1X/DAY
     Route: 048
     Dates: start: 20090101
  8. IRBESARTAN [Suspect]
     Dosage: 1 DF, 1X/DAY
     Route: 048
     Dates: start: 20090901
  9. AVANDIA [Suspect]
     Dosage: 8 MG, 1X/DAY
     Route: 048
     Dates: start: 20071001, end: 20101201
  10. METFORMIN HCL [Suspect]
     Dosage: 2 DF, UNK
     Route: 048
     Dates: start: 20071001

REACTIONS (1)
  - PROSTATE CANCER [None]
